FAERS Safety Report 7370511-8 (Version None)
Quarter: 2011Q1

REPORT INFORMATION
  Report Type: 
  Country: None (occurrence: None)
  Receive Date: 20110323
  Receipt Date: 20110224
  Transmission Date: 20110831
  Serious: No
  Sender: FDA-Public Use
  Company Number: US-B.I. PHARMACEUTICALS,INC./RIDGEFIELD-2011-BP-06773BP

PATIENT
  Sex: Female

DRUGS (4)
  1. LIPITOR [Concomitant]
     Indication: BLOOD CHOLESTEROL INCREASED
     Dosage: 10 MG
     Route: 048
  2. MICARDIS [Suspect]
     Indication: HYPERTENSION
     Dosage: 80 MG
     Route: 048
     Dates: start: 20070101
  3. SYNTHROID [Concomitant]
     Indication: THYROID DISORDER
     Dosage: 75 MEQ
     Route: 048
  4. PRADAXA [Suspect]
     Indication: ATRIAL FIBRILLATION
     Route: 048
     Dates: start: 20110217

REACTIONS (6)
  - DYSPNOEA [None]
  - DIZZINESS [None]
  - ANXIETY [None]
  - INSOMNIA [None]
  - BLOOD PRESSURE FLUCTUATION [None]
  - HEART RATE DECREASED [None]
